FAERS Safety Report 4321243-1 (Version None)
Quarter: 2004Q1

REPORT INFORMATION
  Report Type: 
  Country: None (occurrence: None)
  Receive Date: 20040322
  Receipt Date: 20040322
  Transmission Date: 20041129
  Serious: Yes (Death)
  Sender: FDA-Public Use
  Company Number: None

PATIENT
  Age: 63 Year
  Sex: Male
  Weight: 97.5234 kg

DRUGS (1)
  1. D-MPH 5MG CELGENE [Suspect]
     Dosage: 15 MG BID PO
     Route: 048
     Dates: start: 20030505, end: 20030825

REACTIONS (1)
  - DISEASE PROGRESSION [None]
